FAERS Safety Report 9357888 (Version 1)
Quarter: 2013Q2

REPORT INFORMATION
  Report Type: Report from Study
  Country: JP (occurrence: JP)
  Receive Date: 20130620
  Receipt Date: 20130620
  Transmission Date: 20140414
  Serious: Yes (Death, Hospitalization)
  Sender: FDA-Public Use
  Company Number: JP-ELI_LILLY_AND_COMPANY-JP201306005641

PATIENT
  Age: 71 Year
  Sex: Male

DRUGS (5)
  1. PEMETREXED [Suspect]
     Indication: NON-SMALL CELL LUNG CANCER
     Dosage: 500 MG/M2, SINGLE
     Dates: start: 20130417, end: 20130417
  2. BEVACIZUMAB [Suspect]
     Indication: NON-SMALL CELL LUNG CANCER
     Dosage: 15 MG/KG, SINGLE
     Dates: start: 20130417, end: 20130417
  3. CARBOPLATIN [Suspect]
     Indication: NON-SMALL CELL LUNG CANCER
     Dosage: 6AUC
     Dates: start: 20130417, end: 20130417
  4. FOLIC ACID [Concomitant]
  5. MULTIPLE VITAMINS [Concomitant]

REACTIONS (1)
  - Pneumonia [Fatal]
